FAERS Safety Report 8159014-0 (Version None)
Quarter: 2012Q1

REPORT INFORMATION
  Report Type: 
  Country: None (occurrence: None)
  Receive Date: 20120103
  Receipt Date: 20110928
  Transmission Date: 20120608
  Serious: No
  Sender: FDA-Public Use
  Company Number: AE-2011-001454

PATIENT
  Age: 56 Year
  Sex: Male
  Weight: 72.5755 kg

DRUGS (5)
  1. INCIVEK [Suspect]
     Dosage: 2250 MG (750 MG, 1 IN 8 HR), ORAL
     Route: 048
     Dates: start: 20110903
  2. ZOFRAN [Concomitant]
  3. PHYTONADIONE [Concomitant]
  4. PEG-INTRON (PEGINTERFERON ALFA-2A) [Concomitant]
  5. ROBAVIRIN (RIBAVIRIN) [Concomitant]

REACTIONS (7)
  - BLOOD POTASSIUM DECREASED [None]
  - CHILLS [None]
  - BODY TEMPERATURE INCREASED [None]
  - DECREASED APPETITE [None]
  - RETCHING [None]
  - FATIGUE [None]
  - DIARRHOEA [None]
